FAERS Safety Report 7396573-X (Version None)
Quarter: 2011Q2

REPORT INFORMATION
  Report Type: 
  Country: None (occurrence: None)
  Receive Date: 20110406
  Receipt Date: 20110323
  Transmission Date: 20111010
  Serious: No
  Sender: FDA-Public Use
  Company Number: PHHY2011US24518

PATIENT
  Sex: Male

DRUGS (6)
  1. LISINOPRIL [Concomitant]
  2. LORTAB [Concomitant]
  3. TRAMADOL [Concomitant]
  4. BETA BLOCKING AGENTS [Concomitant]
  5. TASIGNA [Suspect]
     Dosage: 200 MG, BID
     Route: 065
  6. NEXIUM [Concomitant]

REACTIONS (1)
  - DRUG DOSE OMISSION [None]
